FAERS Safety Report 8041089-0 (Version None)
Quarter: 2012Q1

REPORT INFORMATION
  Report Type: 
  Country: None (occurrence: None)
  Receive Date: 20120109
  Receipt Date: 20120103
  Transmission Date: 20120608
  Serious: Yes (Death, Other)
  Sender: FDA-Public Use
  Company Number: 2011SP050512

PATIENT
  Age: 69 Year
  Sex: Female

DRUGS (7)
  1. RIBAVIRIN [Suspect]
     Indication: PRODUCT USED FOR UNKNOWN INDICATION
  2. XANAX [Concomitant]
  3. VICTRELIS [Suspect]
     Indication: PRODUCT USED FOR UNKNOWN INDICATION
     Dosage: 200 MG;Q8H;PO
     Route: 048
     Dates: start: 20110801
  4. VITAMIN D [Concomitant]
  5. ESTRADERM [Concomitant]
  6. METFORMIN HCL [Concomitant]
  7. PEG-INTRON [Suspect]
     Indication: PRODUCT USED FOR UNKNOWN INDICATION

REACTIONS (7)
  - RASH GENERALISED [None]
  - RASH PRURITIC [None]
  - DEPRESSION [None]
  - LEUKOPENIA [None]
  - VISION BLURRED [None]
  - RED BLOOD CELL COUNT DECREASED [None]
  - CATARACT OPERATION [None]
